FAERS Safety Report 14917364 (Version 1)
Quarter: 2018Q2

REPORT INFORMATION
  Report Type: Spontaneous
  Country: US (occurrence: US)
  Receive Date: 20180521
  Receipt Date: 20180521
  Transmission Date: 20180711
  Serious: Yes (Life-Threatening, Hospitalization, Other)
  Sender: FDA-Public Use
  Company Number: US-DENTSPLY-2018SCDP000164

PATIENT
  Age: 18 Month
  Sex: Male

DRUGS (6)
  1. GABAPENTIN. [Suspect]
     Active Substance: GABAPENTIN
     Indication: DERMATITIS DIAPER
     Dosage: UNK
  2. IMIPRAMINE [Suspect]
     Active Substance: IMIPRAMINE
     Indication: DERMATITIS DIAPER
     Dosage: UNK
  3. CLONIDINE. [Suspect]
     Active Substance: CLONIDINE
     Indication: DERMATITIS DIAPER
     Dosage: UNK
  4. KETAMINE [Suspect]
     Active Substance: KETAMINE
     Indication: DERMATITIS DIAPER
     Dosage: UNK
  5. LIDOCAINE. [Suspect]
     Active Substance: LIDOCAINE
     Indication: DERMATITIS DIAPER
     Dosage: UNK
  6. MEFENAMIC ACID. [Suspect]
     Active Substance: MEFENAMIC ACID
     Indication: DERMATITIS DIAPER
     Dosage: UNK

REACTIONS (7)
  - Respiratory depression [Unknown]
  - Hyporeflexia [Unknown]
  - Toxicity to various agents [Unknown]
  - Miosis [Unknown]
  - Drug administered to patient of inappropriate age [Unknown]
  - Unresponsive to stimuli [Unknown]
  - Bradycardia [Unknown]
